FAERS Safety Report 10619649 (Version 5)
Quarter: 2017Q1

REPORT INFORMATION
  Report Type: Spontaneous
  Country: JP (occurrence: JP)
  Receive Date: 20141202
  Receipt Date: 20170119
  Transmission Date: 20170428
  Serious: Yes (Life-Threatening, Hospitalization)
  Sender: FDA-Public Use
  Company Number: JP-ELI_LILLY_AND_COMPANY-JP201411011200

PATIENT
  Age: 27 Year
  Sex: Female

DRUGS (1)
  1. ZYPREXA [Suspect]
     Active Substance: OLANZAPINE
     Indication: PRODUCT USED FOR UNKNOWN INDICATION
     Dosage: UNK
     Route: 048

REACTIONS (5)
  - Diabetes mellitus [Recovering/Resolving]
  - Diabetic hyperosmolar coma [Recovering/Resolving]
  - Neuroleptic malignant syndrome [Recovering/Resolving]
  - Encephalopathy [Recovering/Resolving]
  - Off label use [Unknown]
